FAERS Safety Report 25711475 (Version 1)
Quarter: 2025Q3

REPORT INFORMATION
  Report Type: Spontaneous
  Country: CA (occurrence: CA)
  Receive Date: 20250821
  Receipt Date: 20250821
  Transmission Date: 20251020
  Serious: Yes (Other)
  Sender: BAYER HEALTHCARE LLC
  Company Number: CA-BAYER-2025A110653

PATIENT
  Age: 11 Year
  Sex: Male

DRUGS (3)
  1. ALEVE [Suspect]
     Active Substance: NAPROXEN SODIUM
     Indication: Drug provocation test
     Route: 065
  2. IBUPROFEN [Suspect]
     Active Substance: IBUPROFEN
     Indication: Drug provocation test
     Route: 065
  3. CELECOXIB [Concomitant]
     Active Substance: CELECOXIB
     Indication: Drug provocation test
     Route: 065

REACTIONS (2)
  - Off label use [Unknown]
  - Angioedema [Unknown]
